FAERS Safety Report 8461975-7 (Version None)
Quarter: 2012Q2

REPORT INFORMATION
  Report Type: 
  Country: None (occurrence: None)
  Receive Date: 20120625
  Receipt Date: 20120614
  Transmission Date: 20120825
  Serious: Yes (Hospitalization, Other)
  Sender: FDA-Public Use
  Company Number: BR-SANOFI-AVENTIS-2012SA042986

PATIENT
  Age: 57 Year
  Sex: Male
  Weight: 76 kg

DRUGS (7)
  1. VITAMIN B COMPLEX CAP [Concomitant]
     Indication: ANTICOAGULANT THERAPY
     Route: 048
  2. MELHORAL INFANTIL [Concomitant]
     Indication: ANTICOAGULANT THERAPY
     Route: 048
  3. ATORVASTATIN CALCIUM [Concomitant]
     Route: 048
  4. FUROSEMIDE [Concomitant]
     Indication: RENAL DISORDER
     Route: 048
     Dates: start: 20080101
  5. SOLOSTAR [Suspect]
     Indication: DEVICE THERAPY
     Dates: start: 20070101
  6. LOSARTAN POTASSIUM [Concomitant]
     Indication: BLOOD PRESSURE
     Route: 048
     Dates: start: 20100101
  7. LANTUS [Suspect]
     Indication: TYPE 2 DIABETES MELLITUS
     Route: 058
     Dates: start: 20070101

REACTIONS (16)
  - BACK PAIN [None]
  - HYPERGLYCAEMIA [None]
  - COLD SWEAT [None]
  - VISUAL ACUITY REDUCED [None]
  - OEDEMA PERIPHERAL [None]
  - RETINAL DETACHMENT [None]
  - POLLAKIURIA [None]
  - BURNING SENSATION [None]
  - HYPERHIDROSIS [None]
  - RENAL DISORDER [None]
  - VISUAL IMPAIRMENT [None]
  - EYE PRURITUS [None]
  - EYE IRRITATION [None]
  - BLOOD GLUCOSE DECREASED [None]
  - HEADACHE [None]
  - DYSURIA [None]
